FAERS Safety Report 23541338 (Version 1)
Quarter: 2024Q1

REPORT INFORMATION
  Report Type: Spontaneous
  Country: FR (occurrence: FR)
  Receive Date: 20240219
  Receipt Date: 20240219
  Transmission Date: 20240410
  Serious: Yes (Hospitalization, Other)
  Sender: FDA-Public Use
  Company Number: FR-009507513-2402FRA002574

PATIENT
  Sex: Female
  Weight: 56 kg

DRUGS (7)
  1. KEYTRUDA [Suspect]
     Active Substance: PEMBROLIZUMAB
     Indication: Triple negative breast cancer
     Dosage: 200 MILLIGRAM, Q3W, 4 INFUSIONS IN THE NEOADJUVANT PHASE
     Dates: start: 20221128, end: 20230314
  2. KEYTRUDA [Suspect]
     Active Substance: PEMBROLIZUMAB
     Dosage: 200 MILLIGRAM, Q3W, 8 INFUSIONS IN THE ADJUVANT PHASE
     Dates: start: 20230703, end: 20240108
  3. TRANXENE [Concomitant]
     Active Substance: CLORAZEPATE DIPOTASSIUM
     Dosage: 5 MILLIGRAM
     Route: 048
  4. PACLITAXEL [Concomitant]
     Active Substance: PACLITAXEL
     Indication: Neoplasm
     Dosage: 80 MILLIGRAM/SQ. METER, Q3W
     Dates: start: 20221128, end: 20230220
  5. PACLITAXEL [Concomitant]
     Active Substance: PACLITAXEL
     Dosage: 80 MILLIGRAM/SQ. METER, Q3W
     Dates: end: 20230314
  6. CARBOPLATIN [Concomitant]
     Active Substance: CARBOPLATIN
     Indication: Neoplasm
     Dosage: 5 AUC , Q3W
     Route: 042
     Dates: start: 20221128, end: 20230220
  7. CARBOPLATIN [Concomitant]
     Active Substance: CARBOPLATIN
     Dosage: 5 AUC , Q3W
     Route: 042
     Dates: end: 20230314

REACTIONS (10)
  - Cholecystitis [Recovered/Resolved]
  - Febrile bone marrow aplasia [Unknown]
  - Neutropenia [Recovered/Resolved]
  - Anaemia [Recovered/Resolved]
  - Diarrhoea [Unknown]
  - Pruritus [Unknown]
  - Hot flush [Unknown]
  - Asthenia [Unknown]
  - Drug intolerance [Unknown]
  - Product use issue [Unknown]

NARRATIVE: CASE EVENT DATE: 20230101
